FAERS Safety Report 20674662 (Version 2)
Quarter: 2022Q2

REPORT INFORMATION
  Report Type: Spontaneous
  Country: US (occurrence: US)
  Receive Date: 20220405
  Receipt Date: 20220428
  Transmission Date: 20220721
  Serious: No
  Sender: FDA-Public Use
  Company Number: US-JNJFOC-20220363038

PATIENT
  Age: 78 Year
  Sex: Female
  Weight: 85.352 kg

DRUGS (1)
  1. ULTRAM [Suspect]
     Active Substance: TRAMADOL HYDROCHLORIDE
     Indication: Pain
     Dosage: ULTRAM TABLET 50.00 MG
     Route: 065

REACTIONS (1)
  - Therapeutic product effect decreased [Unknown]
